FAERS Safety Report 22316431 (Version 1)
Quarter: 2023Q2

REPORT INFORMATION
  Report Type: Spontaneous
  Country: US (occurrence: US)
  Receive Date: 20230513
  Receipt Date: 20230513
  Transmission Date: 20230722
  Serious: Yes (Other)
  Sender: FDA-Public Use
  Company Number: US-MLMSERVICE-20230427-4253523-1

PATIENT
  Age: 7 Decade
  Sex: Female

DRUGS (2)
  1. METHOTREXATE [Suspect]
     Active Substance: METHOTREXATE
     Indication: Leptomeningeal myelomatosis
     Dosage: 12 MILLIGRAM, EVERY WEEK (12 MG WAS PLANNED WEEKLY AND INITIATED ON CYCLE 1 DAY 27)
     Route: 037
  2. FULVESTRANT [Concomitant]
     Active Substance: FULVESTRANT
     Indication: Leptomeningeal myelomatosis
     Dosage: 500 MILLIGRAM (500 MG INTRAMUSCULARLY EVERY 28 DAYS WITH A LOADING DOSE ON CYCLE 1 DAY 15)
     Route: 030

REACTIONS (3)
  - Asthenia [Recovering/Resolving]
  - Mouth ulceration [Recovering/Resolving]
  - Pancytopenia [Recovered/Resolved]
